FAERS Safety Report 4705939-5 (Version None)
Quarter: 2005Q2

REPORT INFORMATION
  Report Type: 
  Country: None (occurrence: None)
  Receive Date: 20050629
  Receipt Date: 20050617
  Transmission Date: 20051028
  Serious: Yes (Hospitalization, Other)
  Sender: FDA-Public Use
  Company Number: 2005072697

PATIENT
  Sex: Female
  Weight: 62.5964 kg

DRUGS (9)
  1. ZITHROMAX [Suspect]
     Indication: RESPIRATORY TRACT INFECTION
     Dosage: 250 MG (250 MG, DAILY), ORAL
     Route: 048
     Dates: start: 20050502, end: 20050506
  2. ADVAIR(FLUTICASONE PROPIONATE,SALMETEROL XINAFOATE) [Concomitant]
  3. SPIRIVA (CALAMINE, CAMPHOR, DIPHENHYDRAMINE) [Concomitant]
  4. ALBUTEROL [Concomitant]
  5. NEXIUM [Concomitant]
  6. HYDROMORPHONE HCL [Concomitant]
  7. AVANZA (MIRTAZAPINE) [Concomitant]
  8. ZANAFLEX [Concomitant]
  9. ZOFRAN [Concomitant]

REACTIONS (13)
  - CARDIAC VALVE DISEASE [None]
  - DRUG INEFFECTIVE [None]
  - HYPERTROPHIC OSTEOARTHROPATHY [None]
  - LUNG NEOPLASM [None]
  - MALAISE [None]
  - POST-TRAUMATIC STRESS DISORDER [None]
  - PRODUCTIVE COUGH [None]
  - PYREXIA [None]
  - RESPIRATORY TRACT INFECTION [None]
  - SPUTUM DISCOLOURED [None]
  - TRICUSPID VALVE INCOMPETENCE [None]
  - WEIGHT DECREASED [None]
  - WHEEZING [None]
